FAERS Safety Report 9998263 (Version 2)
Quarter: 2014Q1

REPORT INFORMATION
  Report Type: Report from Study
  Country: IN (occurrence: IN)
  Receive Date: 20140311
  Receipt Date: 20140321
  Transmission Date: 20141002
  Serious: Yes (Death, Other)
  Sender: FDA-Public Use
  Company Number: IN-BRISTOL-MYERS SQUIBB COMPANY-20380929

PATIENT
  Age: 62 Year
  Sex: Male

DRUGS (1)
  1. SPRYCEL [Suspect]
     Indication: CHRONIC MYELOID LEUKAEMIA
     Route: 048
     Dates: start: 20131016, end: 20140126

REACTIONS (3)
  - Malignant neoplasm progression [Fatal]
  - Herpes virus infection [Unknown]
  - Arrhythmia [Unknown]
